FAERS Safety Report 6519399-5 (Version None)
Quarter: 2009Q4

REPORT INFORMATION
  Report Type: 
  Country: None (occurrence: None)
  Receive Date: 20091228
  Receipt Date: 20091221
  Transmission Date: 20100525
  Serious: Yes (Disabling)
  Sender: FDA-Public Use
  Company Number: CA-MERCK-0912CAN00026

PATIENT
  Age: 75 Year
  Sex: Female
  Weight: 54 kg

DRUGS (1)
  1. FOSAMAX PLUS D [Suspect]
     Indication: OSTEOPOROSIS
     Route: 048
     Dates: start: 20090405, end: 20090920

REACTIONS (8)
  - BACK PAIN [None]
  - DECREASED APPETITE [None]
  - DYSGEUSIA [None]
  - DYSPHAGIA [None]
  - FATIGUE [None]
  - HYPOTONIA [None]
  - SENSATION OF FOREIGN BODY [None]
  - WEIGHT DECREASED [None]
